FAERS Safety Report 20322383 (Version 1)
Quarter: 2022Q1

REPORT INFORMATION
  Report Type: Spontaneous
  Country: ES (occurrence: ES)
  Receive Date: 20220111
  Receipt Date: 20220111
  Transmission Date: 20220423
  Serious: Yes (Hospitalization, Other)
  Sender: FDA-Public Use
  Company Number: ES-002147023-PHHY2015ES099511

PATIENT
  Age: 48 Year
  Sex: Male

DRUGS (36)
  1. CLOZAPINE [Suspect]
     Active Substance: CLOZAPINE
     Indication: Schizoaffective disorder bipolar type
     Dosage: 300 MG, QD
     Route: 065
     Dates: start: 2012
  2. CLOZAPINE [Suspect]
     Active Substance: CLOZAPINE
     Indication: Mania
     Dosage: 25 MG, QD
     Route: 065
     Dates: start: 201402
  3. CLOZAPINE [Suspect]
     Active Substance: CLOZAPINE
     Dosage: 75 MG, QD
     Route: 065
     Dates: start: 201402
  4. CLOZAPINE [Suspect]
     Active Substance: CLOZAPINE
     Dosage: 100 MG, QD
     Route: 065
  5. OLANZAPINE [Suspect]
     Active Substance: OLANZAPINE
     Indication: Persecutory delusion
     Dosage: UNK
     Route: 065
  6. CARBAMAZEPINE [Suspect]
     Active Substance: CARBAMAZEPINE
     Indication: Persecutory delusion
     Dosage: 1000 MG, QD
     Route: 065
  7. RISPERIDONE [Suspect]
     Active Substance: RISPERIDONE
     Indication: Persecutory delusion
     Dosage: UNK
     Route: 065
  8. HALOPERIDOL [Suspect]
     Active Substance: HALOPERIDOL
     Indication: Agitation
     Dosage: 9 MG, QD
     Route: 065
  9. HALOPERIDOL [Suspect]
     Active Substance: HALOPERIDOL
     Indication: Persecutory delusion
  10. ZIPRASIDONE [Suspect]
     Active Substance: ZIPRASIDONE
     Indication: Persecutory delusion
     Dosage: 200 MG, QD
     Route: 065
  11. PERPHENAZINE [Suspect]
     Active Substance: PERPHENAZINE
     Indication: Persecutory delusion
     Dosage: 8 MG, QD
     Route: 065
     Dates: start: 201402
  12. ARIPIPRAZOLE [Suspect]
     Active Substance: ARIPIPRAZOLE
     Indication: Persecutory delusion
     Dosage: 30 MG, QD
     Route: 065
     Dates: start: 201402
  13. ARIPIPRAZOLE [Suspect]
     Active Substance: ARIPIPRAZOLE
     Dosage: 5 MG, QD
     Route: 065
  14. LITHIUM CARBONATE [Suspect]
     Active Substance: LITHIUM CARBONATE
     Indication: Mania
     Dosage: 1200 MG, QD
     Route: 065
     Dates: start: 2012
  15. VALPROMIDE [Suspect]
     Active Substance: VALPROMIDE
     Indication: Mania
     Dosage: 2400 MG, QD
     Route: 065
  16. PALIPERIDONE [Suspect]
     Active Substance: PALIPERIDONE
     Indication: Persecutory delusion
     Dosage: 9 MG, QD
     Route: 065
  17. PIMOZIDE [Suspect]
     Active Substance: PIMOZIDE
     Indication: Persecutory delusion
     Dosage: UNK
     Route: 065
  18. LORMETAZEPAM [Suspect]
     Active Substance: LORMETAZEPAM
     Indication: Insomnia
     Dosage: 2 MG, QD
     Route: 065
     Dates: start: 2012
  19. LORMETAZEPAM [Suspect]
     Active Substance: LORMETAZEPAM
     Indication: Mania
     Dosage: 4 MG, QD
     Route: 065
     Dates: start: 201402
  20. LORAZEPAM [Suspect]
     Active Substance: LORAZEPAM
     Indication: Mania
     Dosage: 3.5 MG, QD
     Route: 065
     Dates: start: 2012
  21. LORAZEPAM [Suspect]
     Active Substance: LORAZEPAM
     Dosage: 2 MG, QD
     Route: 065
     Dates: start: 201402
  22. TRIHEXYPHENIDYL [Suspect]
     Active Substance: TRIHEXYPHENIDYL
     Indication: Product used for unknown indication
     Dosage: 5 MG, QD
     Route: 065
     Dates: start: 201402
  23. CLOTHIAPINE [Suspect]
     Active Substance: CLOTHIAPINE
     Indication: Mania
     Dosage: 20 MG, QD
     Route: 065
     Dates: start: 2012
  24. CLOTHIAPINE [Suspect]
     Active Substance: CLOTHIAPINE
     Dosage: 30 MG, QD
     Dates: start: 201402
  25. VALPROIC ACID [Suspect]
     Active Substance: VALPROIC ACID
     Indication: Mania
     Dosage: 2000 MG, QD
     Route: 065
     Dates: start: 201402
  26. VALPROIC ACID [Suspect]
     Active Substance: VALPROIC ACID
     Indication: Psychotic disorder
  27. ENALAPRIL [Concomitant]
     Active Substance: ENALAPRIL
     Indication: Hypertension
     Dosage: 20 MG, QD
     Route: 065
  28. NEBIVOLOL [Concomitant]
     Active Substance: NEBIVOLOL
     Indication: Hypertension
     Dosage: 5 MG, QD
     Route: 065
  29. METFORMIN [Concomitant]
     Active Substance: METFORMIN HYDROCHLORIDE
     Indication: Type 2 diabetes mellitus
     Dosage: 850 MG, BID
     Route: 065
  30. ALLOPURINOL [Concomitant]
     Active Substance: ALLOPURINOL
     Indication: Hyperuricaemia
     Dosage: 100 MG, QD
     Route: 065
  31. FUROSEMIDE [Concomitant]
     Active Substance: FUROSEMIDE
     Indication: Chronic kidney disease
     Dosage: 40 MG, QD
     Route: 065
  32. INSULIN NOS [Concomitant]
     Active Substance: INSULIN NOS
     Indication: Diabetes mellitus management
     Dosage: UNK
     Route: 065
  33. CLONAZEPAM [Concomitant]
     Active Substance: CLONAZEPAM
     Indication: Product used for unknown indication
     Dosage: 2 MG, QD
     Route: 065
  34. ACETAMINOPHEN [Concomitant]
     Active Substance: ACETAMINOPHEN
     Indication: Pyrexia
     Dosage: 500 MG, UNK
     Route: 065
  35. CIPROFLOXACIN [Concomitant]
     Active Substance: CIPROFLOXACIN
     Indication: Respiratory tract infection
     Dosage: 500 MG, QD
     Route: 065
  36. CIPROFLOXACIN [Concomitant]
     Active Substance: CIPROFLOXACIN
     Indication: Pyrexia

REACTIONS (12)
  - Mania [Recovered/Resolved]
  - Pyrexia [Unknown]
  - Lethargy [Unknown]
  - Hyperhidrosis [Unknown]
  - Drug ineffective [Unknown]
  - Respiratory tract infection [Unknown]
  - Renal impairment [Unknown]
  - Blood creatine phosphokinase increased [Unknown]
  - Agitation [Unknown]
  - C-reactive protein increased [Unknown]
  - Neuroleptic malignant syndrome [Unknown]
  - Drug resistance [Unknown]

NARRATIVE: CASE EVENT DATE: 20120301
